FAERS Safety Report 24007883 (Version 2)
Quarter: 2024Q3

REPORT INFORMATION
  Report Type: Spontaneous
  Country: US (occurrence: US)
  Receive Date: 20240625
  Receipt Date: 20240926
  Transmission Date: 20241017
  Serious: No
  Sender: CIPLA
  Company Number: US-BMS-IMIDS-REMS-SI-11590851

PATIENT

DRUGS (8)
  1. LENALIDOMIDE [Suspect]
     Active Substance: LENALIDOMIDE
     Indication: Plasma cell myeloma
     Dosage: 25 MILLIGRAM
     Route: 065
     Dates: start: 20240510
  2. DARZALEX [Concomitant]
     Active Substance: DARATUMUMAB
     Indication: Plasma cell myeloma
     Dosage: UNK, ONCE A WEEK
     Route: 058
     Dates: start: 20240415
  3. VELCADE [Concomitant]
     Active Substance: BORTEZOMIB
     Indication: Plasma cell myeloma
     Dosage: UNK, ONCE A WEEK
     Route: 058
     Dates: start: 20240415
  4. ASPIRIN [Concomitant]
     Active Substance: ASPIRIN
     Indication: Product used for unknown indication
     Dosage: 81 MILLIGRAM, QD
     Route: 065
     Dates: start: 20240417
  5. ALLOPURINOL [Concomitant]
     Active Substance: ALLOPURINOL
     Indication: Plasma cell myeloma
     Dosage: 300 MILLIGRAM, QD
     Route: 065
     Dates: start: 20240417
  6. DEXAMETHASONE [Concomitant]
     Active Substance: DEXAMETHASONE
     Indication: Plasma cell myeloma
     Dosage: 20 MILLIGRAM, TWICE A WEEK
     Route: 065
     Dates: start: 20240417
  7. SULFAMETHOXAZOLE AND TRIMETHOPRIM [Concomitant]
     Active Substance: SULFAMETHOXAZOLE\TRIMETHOPRIM
     Indication: Pneumocystis jirovecii pneumonia
     Dosage: 1 DOSAGE FORM (800 / 160 MG / 1 TABLET 3 TIMES A WEEK)
     Route: 065
     Dates: start: 20240417
  8. ACYCLOVIR [Concomitant]
     Active Substance: ACYCLOVIR
     Indication: Plasma cell myeloma
     Dosage: 800 MILLIGRAM, BID
     Route: 048
     Dates: start: 20240417

REACTIONS (1)
  - Inappropriate schedule of product administration [Unknown]

NARRATIVE: CASE EVENT DATE: 20240501
